FAERS Safety Report 11185847 (Version 1)
Quarter: 2015Q2

REPORT INFORMATION
  Report Type: Spontaneous
  Country: US (occurrence: US)
  Receive Date: 20150612
  Receipt Date: 20150612
  Transmission Date: 20150821
  Serious: No
  Sender: FDA-Public Use
  Company Number: US-GLAXOSMITHKLINE-US2015GSK081560

PATIENT
  Sex: Female

DRUGS (4)
  1. CARVEDILOL TABLET [Suspect]
     Active Substance: CARVEDILOL
     Indication: ARRHYTHMIA
  2. COREG [Suspect]
     Active Substance: CARVEDILOL
     Indication: ILL-DEFINED DISORDER
     Dosage: 12.5 MG, BID
     Route: 048
  3. COREG [Suspect]
     Active Substance: CARVEDILOL
     Indication: ARRHYTHMIA
  4. CARVEDILOL TABLET [Suspect]
     Active Substance: CARVEDILOL
     Indication: ILL-DEFINED DISORDER
     Dosage: 12.5 MG, BID
     Route: 048
     Dates: start: 2010

REACTIONS (2)
  - Drug ineffective [Recovered/Resolved]
  - Dizziness [Unknown]
